FAERS Safety Report 9717595 (Version 2)
Quarter: 2014Q2

REPORT INFORMATION
  Report Type: Spontaneous
  Country: US (occurrence: US)
  Receive Date: 20131127
  Receipt Date: 20140509
  Transmission Date: 20141212
  Serious: Yes (Hospitalization)
  Sender: FDA-Public Use
  Company Number: US-ABBVIE-13P-163-1172765-00

PATIENT
  Sex: Female
  Weight: 67.65 kg

DRUGS (5)
  1. HUMIRA [Suspect]
     Indication: CROHN^S DISEASE
     Dates: start: 2012, end: 201308
  2. BENICAR WITH HCTZ [Concomitant]
     Indication: HYPERTENSION
  3. PROTONIX [Concomitant]
     Indication: GASTROOESOPHAGEAL REFLUX DISEASE
  4. ACTIGALL [Concomitant]
     Indication: CHOLANGITIS SCLEROSING
  5. ZYRTEC [Concomitant]
     Indication: RHINITIS ALLERGIC

REACTIONS (6)
  - Intervertebral disc protrusion [Unknown]
  - Nerve root compression [Recovered/Resolved]
  - Muscular weakness [Recovered/Resolved]
  - Psoriasis [Recovering/Resolving]
  - Surgical failure [Not Recovered/Not Resolved]
  - Spinal disorder [Not Recovered/Not Resolved]
